FAERS Safety Report 4335386-X (Version None)
Quarter: 2004Q2

REPORT INFORMATION
  Report Type: 
  Country: None (occurrence: None)
  Receive Date: 20040408
  Receipt Date: 20040408
  Transmission Date: 20050107
  Serious: Yes (Life-Threatening, Hospitalization)
  Sender: FDA-Public Use
  Company Number: None

PATIENT
  Age: 17 Year
  Sex: Female

DRUGS (2)
  1. ACETAMINOPHEN [Suspect]
     Indication: SUICIDE ATTEMPT
     Dosage: ~20 TABS PO X 1
     Route: 048
     Dates: start: 20040108
  2. ONDANSETRON HCL [Concomitant]

REACTIONS (2)
  - NAUSEA [None]
  - OVERDOSE [None]
